FAERS Safety Report 24246960 (Version 2)
Quarter: 2024Q3

REPORT INFORMATION
  Report Type: Spontaneous
  Country: EG (occurrence: EG)
  Receive Date: 20240826
  Receipt Date: 20240906
  Transmission Date: 20241017
  Serious: Yes (Other)
  Sender: NOVO NORDISK
  Company Number: EG-NOVOPROD-1269667

PATIENT
  Sex: Male
  Weight: 73 kg

DRUGS (2)
  1. INSULIN HUMAN [Suspect]
     Active Substance: INSULIN HUMAN
     Indication: Diabetes mellitus
     Dosage: 17 IU, QD (12U AT MORNING AND 5 AT NIGHT)(STARTED 10 YEARS AGO)
     Route: 058
  2. SUGARLO [Concomitant]
     Dosage: UNK ONCE DAILY
     Route: 048

REACTIONS (4)
  - Cataract operation [Unknown]
  - Intraocular lens implant [Unknown]
  - Intravitreal implant [Unknown]
  - Glycosylated haemoglobin increased [Unknown]

NARRATIVE: CASE EVENT DATE: 20240401
